FAERS Safety Report 12591280 (Version 1)
Quarter: 2016Q3

REPORT INFORMATION
  Report Type: Spontaneous
  Country: US (occurrence: None)
  Receive Date: 20160725
  Receipt Date: 20160725
  Transmission Date: 20161109
  Serious: No
  Sender: FDA-Public Use
  Company Number: None

PATIENT
  Age: 52 Year
  Sex: Male
  Weight: 112.04 kg

DRUGS (2)
  1. CARBOPLATIN, 600MG/60ML [Suspect]
     Active Substance: CARBOPLATIN
     Indication: LUNG SQUAMOUS CELL CARCINOMA STAGE IV
     Route: 041
     Dates: start: 20160701, end: 20160722
  2. PACLITAXEL, 300MG/5ML [Suspect]
     Active Substance: PACLITAXEL
     Indication: LUNG SQUAMOUS CELL CARCINOMA STAGE IV
     Route: 041
     Dates: start: 20160701, end: 20160722

REACTIONS (3)
  - Blood pressure decreased [None]
  - Oxygen saturation decreased [None]
  - Hyperhidrosis [None]

NARRATIVE: CASE EVENT DATE: 20160722
